FAERS Safety Report 10150657 (Version 1)
Quarter: 2014Q2

REPORT INFORMATION
  Report Type: Spontaneous
  Country: FR (occurrence: FR)
  Receive Date: 20140502
  Receipt Date: 20140502
  Transmission Date: 20141212
  Serious: Yes (Death, Hospitalization, Other)
  Sender: FDA-Public Use
  Company Number: FR-BAXTER-2014BAX020657

PATIENT
  Age: 57 Year
  Sex: Female

DRUGS (13)
  1. UROMITEXAN 1 G/10 ML, SOLUTION INJECTABLE POUR PERFUSION EN FLACON [Suspect]
     Indication: PRODUCT USED FOR UNKNOWN INDICATION
     Route: 042
     Dates: start: 20140313, end: 20140314
  2. IFOSFAMIDE EG [Suspect]
     Indication: LYMPHOMA
     Route: 042
     Dates: start: 20140313, end: 20140314
  3. CARBOPLATINE [Suspect]
     Indication: LYMPHOMA
     Route: 042
     Dates: start: 20140313
  4. ZOPHREN [Suspect]
     Indication: PREMEDICATION
     Route: 042
     Dates: start: 20140312, end: 20140314
  5. ETOPOSIDE TEVA [Suspect]
     Indication: LYMPHOMA
     Route: 042
     Dates: start: 20140312, end: 20140314
  6. MABTHERA [Suspect]
     Indication: LYMPHOMA
     Route: 042
     Dates: start: 20140312, end: 20140312
  7. PLITICAN [Concomitant]
     Indication: PREMEDICATION
     Route: 065
     Dates: start: 201403, end: 201403
  8. SOLUMEDROL [Concomitant]
     Indication: PREMEDICATION
     Route: 065
     Dates: start: 201403, end: 201403
  9. ZELITREX [Concomitant]
     Indication: PRODUCT USED FOR UNKNOWN INDICATION
     Route: 065
  10. INEXIUM [Concomitant]
     Indication: PRODUCT USED FOR UNKNOWN INDICATION
     Route: 065
  11. ORACILLINE [Concomitant]
     Indication: PRODUCT USED FOR UNKNOWN INDICATION
     Route: 065
  12. SULFAMETHOXAZOL W/TRIMETOPRIM [Concomitant]
     Indication: PRODUCT USED FOR UNKNOWN INDICATION
     Route: 065
  13. KEPPRA [Concomitant]
     Indication: PRODUCT USED FOR UNKNOWN INDICATION
     Route: 065

REACTIONS (4)
  - Neurotoxicity [Recovered/Resolved]
  - Cystitis haemorrhagic [Unknown]
  - Bone marrow failure [Unknown]
  - Lung infection [Fatal]
